FAERS Safety Report 6758517-0 (Version None)
Quarter: 2010Q2

REPORT INFORMATION
  Report Type: 
  Country: None (occurrence: None)
  Receive Date: 20100607
  Receipt Date: 20100527
  Transmission Date: 20101027
  Serious: Yes (Other)
  Sender: FDA-Public Use
  Company Number: B0646799A

PATIENT
  Age: 53 Year
  Sex: Male
  Weight: 98 kg

DRUGS (31)
  1. KIVEXA [Suspect]
     Indication: ANTIRETROVIRAL THERAPY
     Dates: start: 19961105
  2. KIVEXA [Suspect]
     Indication: HIV INFECTION
     Dates: start: 20000308, end: 20010703
  3. KIVEXA [Suspect]
     Dates: start: 20010704, end: 20040930
  4. KIVEXA [Suspect]
     Dates: start: 20041001, end: 20050403
  5. KIVEXA [Suspect]
     Dates: start: 20050404, end: 20050529
  6. KIVEXA [Suspect]
     Dates: start: 20050530, end: 20080522
  7. ABACAVIR [Suspect]
     Indication: ANTIRETROVIRAL THERAPY
     Dates: start: 20000308, end: 20080522
  8. EFAVIRENZ [Suspect]
     Dates: start: 20000308, end: 20010703
  9. EFAVIRENZ [Suspect]
     Dates: start: 20010704, end: 20040930
  10. EFAVIRENZ [Suspect]
     Dates: start: 20041001, end: 20050403
  11. EFAVIRENZ [Suspect]
     Dates: start: 20050404, end: 20050529
  12. EFAVIRENZ [Suspect]
     Dates: start: 20050530, end: 20080522
  13. EFAVIRENZ [Suspect]
     Indication: ANTIRETROVIRAL THERAPY
     Dates: end: 20091201
  14. NORVIR [Suspect]
     Indication: ANTIRETROVIRAL THERAPY
     Dates: start: 19970218, end: 19970728
  15. NORVIR [Suspect]
     Indication: HIV INFECTION
     Dates: start: 19970729, end: 20000307
  16. NORVIR [Suspect]
     Dates: start: 20041001, end: 20050403
  17. NORVIR [Suspect]
     Dates: start: 20050404, end: 20050529
  18. NORVIR [Suspect]
     Dates: start: 20050530, end: 20080522
  19. NORVIR [Suspect]
     Dates: start: 20080523, end: 20080615
  20. NORVIR [Suspect]
     Dates: start: 20080616, end: 20091214
  21. NORVIR [Suspect]
     Dates: start: 20091215
  22. REYATAZ [Suspect]
     Indication: ANTIRETROVIRAL THERAPY
     Dates: start: 20041001, end: 20050403
  23. REYATAZ [Suspect]
     Indication: HIV INFECTION
     Dates: start: 20050404, end: 20050529
  24. REYATAZ [Suspect]
     Dates: start: 20050530, end: 20080522
  25. REYATAZ [Suspect]
     Dates: start: 20080523, end: 20080615
  26. REYATAZ [Suspect]
     Dates: start: 20080616, end: 20091214
  27. KALETRA [Suspect]
     Indication: ANTIRETROVIRAL THERAPY
     Dates: start: 20000308, end: 20040930
  28. KALETRA [Suspect]
     Indication: HIV INFECTION
  29. ATRIPLA [Suspect]
     Indication: HIV INFECTION
     Dates: start: 20080616, end: 20091214
  30. DARUNAVIR [Concomitant]
     Indication: HIV INFECTION
  31. VIREAD [Concomitant]
     Indication: HIV INFECTION
     Dates: start: 20080523, end: 20080615

REACTIONS (3)
  - ABNORMAL DREAMS [None]
  - DIARRHOEA [None]
  - MYOCARDIAL INFARCTION [None]
